FAERS Safety Report 18421830 (Version 1)
Quarter: 2020Q4

REPORT INFORMATION
  Report Type: Spontaneous
  Country: US (occurrence: CA)
  Receive Date: 20201023
  Receipt Date: 20201023
  Transmission Date: 20210114
  Serious: Yes (Other)
  Sender: FDA-Public Use
  Company Number: US-MYLANLABS-2020M1087156

PATIENT
  Sex: Female

DRUGS (12)
  1. APO-PREDNISONE [Concomitant]
     Active Substance: PREDNISONE
     Dosage: TAKE 1 TABLET ONCE DAILY
     Dates: start: 20130521, end: 20130521
  2. VENTOLIN HFA [Concomitant]
     Active Substance: ALBUTEROL SULFATE
     Dosage: UNK, PRN, 1/2 PUFF FOUR TIMES A DAY
  3. HYCODAN                            /00060002/ [Concomitant]
     Active Substance: HYDROCODONE BITARTRATE
     Dosage: 1 OR 2 TABLET EVERY 4 TO 6 HOURS
  4. TESTOSTERONE. [Concomitant]
     Active Substance: TESTOSTERONE
     Dosage: 1 CAPSULE EVERY 3 DAYS
  5. HYCODAN                            /00060002/ [Concomitant]
     Active Substance: HYDROCODONE BITARTRATE
     Dosage: 1 OR 2 TABLET EVERY 4 TO 6 HOURS
  6. MYLAN LEVOFLOXACIN 500 MG [Suspect]
     Active Substance: LEVOFLOXACIN
     Dosage: TAKE 1 TABLET ONCE DAILY
     Dates: start: 20130522, end: 20130522
  7. PREDNISONE. [Concomitant]
     Active Substance: PREDNISONE
     Dosage: 1 DOSAGE FORM, QD
  8. TESTOSTERONE. [Concomitant]
     Active Substance: TESTOSTERONE
     Dosage: 1 CAPSULE 2 TO 3 TIMES WEEKLY
  9. MYLAN LEVOFLOXACIN 500 MG [Suspect]
     Active Substance: LEVOFLOXACIN
     Indication: PRODUCT USED FOR UNKNOWN INDICATION
     Dosage: TAKE 1 TABLET ONCE DAILY
     Dates: start: 20130521, end: 20130521
  10. MALARONE [Concomitant]
     Active Substance: ATOVAQUONE\PROGUANIL HYDROCHLORIDE
     Dosage: STARTED 2 DAY BEFORE TRIP, DURING AND  7 DAYS AFTER
  11. AZITHROMYCIN DIHYDRATE. [Concomitant]
     Active Substance: AZITHROMYCIN DIHYDRATE
     Indication: DIARRHOEA
     Dosage: 250 MILLIGRAM, QD
  12. PREMARIN [Concomitant]
     Active Substance: ESTROGENS, CONJUGATED
     Dosage: 1 DOSAGE FORM, QD

REACTIONS (32)
  - Mental impairment [Unknown]
  - Tendon rupture [Unknown]
  - Arthralgia [Unknown]
  - Tachycardia [Unknown]
  - Visual impairment [Unknown]
  - Nausea [Unknown]
  - Gait inability [Unknown]
  - Anxiety [Unknown]
  - Contraindicated product administered [Unknown]
  - Condition aggravated [Unknown]
  - Arthropathy [Unknown]
  - Visual acuity reduced [Unknown]
  - Cataract [Unknown]
  - Rotator cuff syndrome [Unknown]
  - Tendonitis [Unknown]
  - Back pain [Unknown]
  - Hallucination [Unknown]
  - Bedridden [Unknown]
  - Contusion [Unknown]
  - Muscular weakness [Unknown]
  - Ligament rupture [Unknown]
  - Confusional state [Unknown]
  - Insomnia [Unknown]
  - Neuropathy peripheral [Unknown]
  - Vision blurred [Unknown]
  - Depression [Unknown]
  - Joint noise [Unknown]
  - Myalgia [Unknown]
  - Dizziness [Unknown]
  - Headache [Unknown]
  - Abdominal pain upper [Unknown]
  - Pain [Unknown]

NARRATIVE: CASE EVENT DATE: 201305
